FAERS Safety Report 11422724 (Version 1)
Quarter: 2015Q3

REPORT INFORMATION
  Report Type: Spontaneous
  Country: US (occurrence: US)
  Receive Date: 20150827
  Receipt Date: 20150827
  Transmission Date: 20151125
  Serious: No
  Sender: FDA-Public Use
  Company Number: US-SUN PHARMACEUTICAL INDUSTRIES LTD-2015US-099552

PATIENT
  Age: 86 Year
  Sex: Female

DRUGS (1)
  1. DOXYCYCLINE. [Suspect]
     Active Substance: DOXYCYCLINE
     Indication: ANTIBIOTIC THERAPY
     Dosage: 2 DF, DAILY
     Route: 048
     Dates: start: 20150503

REACTIONS (1)
  - Metamorphopsia [Unknown]

NARRATIVE: CASE EVENT DATE: 20150503
